FAERS Safety Report 4804739-5 (Version None)
Quarter: 2005Q4

REPORT INFORMATION
  Report Type: 
  Country: None (occurrence: None)
  Receive Date: 20051020
  Receipt Date: 20050518
  Transmission Date: 20060501
  Serious: Yes (Other)
  Sender: FDA-Public Use
  Company Number: PHNU2005DE01975

PATIENT
  Age: 55 Year
  Sex: Female
  Weight: 52 kg

DRUGS (7)
  1. HERCEPTIN [Concomitant]
     Indication: BREAST CANCER METASTATIC
     Dosage: 1 DF, UNK
     Dates: start: 20030501
  2. HERCEPTIN [Concomitant]
     Dosage: 1 DF, TIW
     Dates: start: 20040501
  3. ZOMETA [Suspect]
     Indication: METASTASES TO BONE
     Dosage: 4 MG, QMO
     Dates: start: 20030201, end: 20040201
  4. ZOMETA [Suspect]
     Dosage: 4 MG, TIW
     Dates: start: 20040301, end: 20050308
  5. ARIMIDEX [Concomitant]
     Indication: BREAST CANCER FEMALE
     Dosage: 1 MG, UNK
     Route: 048
     Dates: start: 20030501, end: 20031001
  6. NAVELBINE [Concomitant]
     Indication: BREAST CANCER FEMALE
     Dosage: 47 G, UNK
     Dates: start: 20031001, end: 20040901
  7. XELODA [Concomitant]
     Indication: BREAST CANCER FEMALE
     Dosage: 5 DF, QD
     Route: 048
     Dates: start: 20040901, end: 20050421

REACTIONS (13)
  - ACTINOMYCOSIS [None]
  - BIOPSY BONE ABNORMAL [None]
  - BONE DISORDER [None]
  - BONE FISTULA [None]
  - DENTAL TREATMENT [None]
  - GINGIVAL INFECTION [None]
  - IMPAIRED HEALING [None]
  - INFLAMMATION [None]
  - OSTEOMYELITIS [None]
  - OSTEONECROSIS [None]
  - PURULENT DISCHARGE [None]
  - TOOTH EXTRACTION [None]
  - WOUND DEBRIDEMENT [None]
